FAERS Safety Report 19134610 (Version 4)
Quarter: 2021Q4

REPORT INFORMATION
  Report Type: Report from Study
  Country: MX (occurrence: MX)
  Receive Date: 20210414
  Receipt Date: 20211125
  Transmission Date: 20220303
  Serious: Yes (Other)
  Sender: FDA-Public Use
  Company Number: NVSC2021MX079009

PATIENT
  Age: 28 Year
  Sex: Female
  Weight: 80 kg

DRUGS (10)
  1. MEKINIST [Suspect]
     Active Substance: TRAMETINIB DIMETHYL SULFOXIDE
     Indication: Metastatic malignant melanoma
     Dosage: 4 DF, QD (0.5 MG)
     Route: 048
     Dates: start: 201910
  2. MEKINIST [Suspect]
     Active Substance: TRAMETINIB DIMETHYL SULFOXIDE
     Dosage: 2 MG, Q24H (4 X 0.5 MG)
     Route: 048
     Dates: start: 201911, end: 202001
  3. MEKINIST [Suspect]
     Active Substance: TRAMETINIB DIMETHYL SULFOXIDE
     Dosage: 2 MG, Q24H  (4 X 0.5 MG)  (2 MONTHS AGO)
     Route: 048
  4. MEKINIST [Suspect]
     Active Substance: TRAMETINIB DIMETHYL SULFOXIDE
     Dosage: 4 DF (0.5 MG) (IN MORNING)
     Route: 048
     Dates: start: 201910, end: 202108
  5. TAFINLAR [Suspect]
     Active Substance: DABRAFENIB MESYLATE
     Indication: Metastatic malignant melanoma
     Dosage: 4 DF, QD (75 MG)
     Route: 048
     Dates: start: 201910
  6. TAFINLAR [Suspect]
     Active Substance: DABRAFENIB MESYLATE
     Dosage: 2 DF, Q12H
     Route: 048
     Dates: start: 201911, end: 202001
  7. TAFINLAR [Suspect]
     Active Substance: DABRAFENIB MESYLATE
     Dosage: 2 DF, Q12H (2 MONTHS AGO)
     Route: 048
  8. TAFINLAR [Suspect]
     Active Substance: DABRAFENIB MESYLATE
     Dosage: 2 DF (75MG) (2 IN MORNING AND 2 IN AFTERNOON)
     Route: 048
     Dates: start: 201910, end: 202108
  9. NIVOLUMAB [Concomitant]
     Active Substance: NIVOLUMAB
     Indication: Metastatic malignant melanoma
     Dosage: 1 DF, QMO
     Route: 042
     Dates: start: 20200406, end: 20210213
  10. PREDNISONE [Concomitant]
     Active Substance: PREDNISONE
     Indication: Malignant melanoma
     Dosage: 5 MG, QD
     Route: 048
     Dates: start: 202002

REACTIONS (5)
  - Eye inflammation [Not Recovered/Not Resolved]
  - Visual impairment [Unknown]
  - Neoplasm [Not Recovered/Not Resolved]
  - Drug ineffective [Not Recovered/Not Resolved]
  - Off label use [Unknown]

NARRATIVE: CASE EVENT DATE: 20191101
